FAERS Safety Report 19813477 (Version 1)
Quarter: 2021Q3

REPORT INFORMATION
  Report Type: Spontaneous
  Country: US (occurrence: US)
  Receive Date: 20210908
  Receipt Date: 20210908
  Transmission Date: 20211014
  Serious: Yes (Other)
  Sender: FDA-Public Use
  Company Number: None

PATIENT
  Age: 68 Year
  Sex: Female

DRUGS (5)
  1. AMLODIPINE [Concomitant]
     Active Substance: AMLODIPINE BESYLATE
  2. ASPIRIN 81MG [Concomitant]
     Active Substance: ASPIRIN
  3. PROAIR HFA [Concomitant]
     Active Substance: ALBUTEROL SULFATE
  4. VERZENIO [Suspect]
     Active Substance: ABEMACICLIB
     Dosage: OTHER FREQUENCY:PO BID;?
     Route: 048
     Dates: start: 20210825, end: 20210831
  5. FASLODEX [Concomitant]
     Active Substance: FULVESTRANT

REACTIONS (1)
  - Muscle spasms [None]

NARRATIVE: CASE EVENT DATE: 20210831
